FAERS Safety Report 8905186 (Version 2)
Quarter: 2012Q4

REPORT INFORMATION
  Report Type: 
  Country: FR (occurrence: FR)
  Receive Date: 20121113
  Receipt Date: 20121218
  Transmission Date: 20130627
  Serious: Yes (Life-Threatening, Hospitalization)
  Sender: FDA-Public Use
  Company Number: FR-009507513-1211FRA001440

PATIENT
  Age: 66 Year
  Sex: Male

DRUGS (1)
  1. ORGARAN [Suspect]
     Indication: HEPARIN-INDUCED THROMBOCYTOPENIA
     Dosage: UNK
     Route: 042
     Dates: start: 20120814, end: 20120831

REACTIONS (2)
  - Shock haemorrhagic [Not Recovered/Not Resolved]
  - Haematoma [Not Recovered/Not Resolved]
